FAERS Safety Report 14098497 (Version 2)
Quarter: 2018Q3

REPORT INFORMATION
  Report Type: Report from Study
  Country: US (occurrence: US)
  Receive Date: 20171016
  Receipt Date: 20180928
  Transmission Date: 20181010
  Serious: No
  Sender: FDA-Public Use
  Company Number: US-AMGEN-USASL2017132417

PATIENT
  Age: 67 Year
  Sex: Female
  Weight: 57.14 kg

DRUGS (11)
  1. ATORVASTATIN CALCIUM. [Concomitant]
     Active Substance: ATORVASTATIN CALCIUM
     Dosage: 20 MG, QD FOR 90 DAYS
     Route: 048
  2. PROLIA [Suspect]
     Active Substance: DENOSUMAB
     Indication: OSTEOARTHRITIS
     Dosage: 60 MG, Q6MO
     Route: 058
  3. PROLIA [Suspect]
     Active Substance: DENOSUMAB
     Indication: OSTEOPOROSIS
  4. SERTRALINE HCL [Concomitant]
     Active Substance: SERTRALINE HYDROCHLORIDE
     Dosage: 50 MG, QD FOR 90 DAYS
  5. PROLIA [Suspect]
     Active Substance: DENOSUMAB
     Indication: BONE DISORDER
  6. TRAZODONE HYDROCHLORIDE. [Concomitant]
     Active Substance: TRAZODONE HYDROCHLORIDE
     Indication: INSOMNIA
     Dosage: 50 MG, AS NECESSARY (1 OR 2 TO 1 TABLETS)
  7. ASPIRIN. [Concomitant]
     Active Substance: ASPIRIN
     Dosage: 81 MG, QD
  8. CETRIZINE [Concomitant]
     Active Substance: CETIRIZINE HYDROCHLORIDE
     Dosage: 10 MG, QD
     Route: 048
  9. VITAMIN D [Concomitant]
     Active Substance: CHOLECALCIFEROL
     Dosage: 200 UNIT, QD FOR 90 DAYS
     Route: 048
  10. FLONASE [Concomitant]
     Active Substance: FLUTICASONE PROPIONATE
     Dosage: 50 MUG, BID FOR 90 DAYS
  11. CYCLOBENZAPRINE HCL [Concomitant]
     Active Substance: CYCLOBENZAPRINE HYDROCHLORIDE
     Dosage: 10 MG, QD FOR 90 DAYS

REACTIONS (1)
  - Off label use [Unknown]
